FAERS Safety Report 4948247-X (Version None)
Quarter: 2006Q1

REPORT INFORMATION
  Report Type: 
  Country: None (occurrence: None)
  Receive Date: 20060313
  Receipt Date: 20060228
  Transmission Date: 20060701
  Serious: Yes (Hospitalization)
  Sender: FDA-Public Use
  Company Number: 2006RR-01710

PATIENT
  Age: 38 Year
  Sex: Male

DRUGS (4)
  1. CLARITHROMYCIN [Suspect]
     Indication: PNEUMONIA STREPTOCOCCAL
     Dosage: 500 MG BID ORAL
     Route: 048
  2. PAROXETINE HCL [Concomitant]
  3. RISPERIDONE [Concomitant]
  4. CLONAZEPAM [Concomitant]

REACTIONS (4)
  - COUGH [None]
  - DRUG INEFFECTIVE [None]
  - HAEMOPTYSIS [None]
  - PYREXIA [None]
